FAERS Safety Report 11908848 (Version 1)
Quarter: 2016Q1

REPORT INFORMATION
  Report Type: Spontaneous
  Country: None (occurrence: JP)
  Receive Date: 20160111
  Receipt Date: 20160111
  Transmission Date: 20160526
  Serious: Yes (Other)
  Sender: FDA-Public Use
  Company Number: JP-ALLERGAN-1600451US

PATIENT
  Age: 67 Year
  Sex: Male

DRUGS (4)
  1. GATIFLO [Suspect]
     Active Substance: GATIFLOXACIN
     Indication: VISION BLURRED
     Dosage: 1 GTT, QID
     Route: 047
     Dates: start: 201209, end: 201307
  2. GATIFLO [Suspect]
     Active Substance: GATIFLOXACIN
     Indication: CONJUNCTIVAL HYPERAEMIA
  3. FLUOROMETHOLONE 0.1% EYEDROPS [Suspect]
     Active Substance: FLUOROMETHOLONE
     Indication: VISION BLURRED
     Dosage: 1 GTT, QID
     Route: 047
     Dates: start: 201209, end: 201307
  4. FLUOROMETHOLONE 0.1% EYEDROPS [Suspect]
     Active Substance: FLUOROMETHOLONE
     Indication: CONJUNCTIVAL HYPERAEMIA

REACTIONS (3)
  - Corneal thinning [Recovered/Resolved]
  - Ophthalmic herpes simplex [Recovered/Resolved]
  - Cataract [Recovered/Resolved]

NARRATIVE: CASE EVENT DATE: 201303
